FAERS Safety Report 17864759 (Version 9)
Quarter: 2020Q4

REPORT INFORMATION
  Report Type: Spontaneous
  Country: US (occurrence: US)
  Receive Date: 20200605
  Receipt Date: 20201120
  Transmission Date: 20210113
  Serious: Yes (Other)
  Sender: FDA-Public Use
  Company Number: US-SHIRE-US202018545

PATIENT
  Age: 78 Year
  Sex: Female
  Weight: 59.41 kg

DRUGS (26)
  1. GAMMAGARD LIQUID [Suspect]
     Active Substance: HUMAN IMMUNOGLOBULIN G
     Indication: MYASTHENIA GRAVIS
     Dosage: 30 GRAM, 1X/WEEK
     Route: 042
     Dates: start: 20120119
  2. CLONIDINE. [Concomitant]
     Active Substance: CLONIDINE
  3. FLOMAX [Concomitant]
     Active Substance: TAMSULOSIN HYDROCHLORIDE
  4. VITAMIN B12 [Concomitant]
     Active Substance: CYANOCOBALAMIN
  5. NORMAL SALINE [Concomitant]
     Active Substance: SODIUM CHLORIDE
  6. GAMMAGARD LIQUID [Suspect]
     Active Substance: HUMAN IMMUNOGLOBULIN G
     Dosage: 30 GRAM, 1X/WEEK
     Route: 042
     Dates: start: 20120905
  7. ACETAMINOPHEN. [Concomitant]
     Active Substance: ACETAMINOPHEN
  8. COLACE [Concomitant]
     Active Substance: DOCUSATE SODIUM
  9. SYNTHROID [Concomitant]
     Active Substance: LEVOTHYROXINE SODIUM
  10. BUSPIRONE [Concomitant]
     Active Substance: BUSPIRONE HYDROCHLORIDE
  11. MIRALAX [Concomitant]
     Active Substance: POLYETHYLENE GLYCOL 3350
  12. PROAIR HFA [Concomitant]
     Active Substance: ALBUTEROL SULFATE
  13. OXYGEN. [Concomitant]
     Active Substance: OXYGEN
  14. SODIUM CHLORIDE. [Concomitant]
     Active Substance: SODIUM CHLORIDE
  15. SOLIRIS [Suspect]
     Active Substance: ECULIZUMAB
     Indication: PRODUCT USED FOR UNKNOWN INDICATION
     Dosage: UNK
     Route: 065
     Dates: start: 20200618
  16. DIPHENHYDRAMINE. [Concomitant]
     Active Substance: DIPHENHYDRAMINE
  17. EPINEPHRINE. [Concomitant]
     Active Substance: EPINEPHRINE
  18. PANTOPRAZOLE [Concomitant]
     Active Substance: PANTOPRAZOLE
  19. CYCLOSPORINE. [Concomitant]
     Active Substance: CYCLOSPORINE
  20. VITAMIN B12 [VITAMIN B12 NOS] [Concomitant]
     Active Substance: CYANOCOBALAMIN
  21. GAMMAGARD LIQUID [Suspect]
     Active Substance: HUMAN IMMUNOGLOBULIN G
     Dosage: 30 GRAM, 1X/WEEK
     Route: 042
     Dates: start: 20120904
  22. LIDOCAINE. [Concomitant]
     Active Substance: LIDOCAINE
  23. DILTIAZEM. [Concomitant]
     Active Substance: DILTIAZEM
  24. MORPHINE SULFATE. [Concomitant]
     Active Substance: MORPHINE SULFATE
  25. METAMUCIL [Concomitant]
     Active Substance: PLANTAGO SEED
  26. VITAMIN D3 [Concomitant]
     Active Substance: CHOLECALCIFEROL

REACTIONS (20)
  - Dysphagia [Unknown]
  - Nausea [Unknown]
  - Urinary incontinence [Unknown]
  - Decreased appetite [Unknown]
  - Blood pressure increased [Recovered/Resolved]
  - Fatigue [Unknown]
  - Limb injury [Unknown]
  - Malaise [Unknown]
  - Headache [Unknown]
  - Asthenia [Unknown]
  - Intentional product use issue [Unknown]
  - Dyspnoea [Unknown]
  - Anal incontinence [Unknown]
  - Infusion related reaction [Unknown]
  - Muscular weakness [Unknown]
  - Abdominal discomfort [Unknown]
  - Pyrexia [Unknown]
  - Chills [Unknown]
  - Aphasia [Unknown]
  - Unevaluable event [Unknown]

NARRATIVE: CASE EVENT DATE: 20200618
